FAERS Safety Report 7867922-0 (Version None)
Quarter: 2011Q4

REPORT INFORMATION
  Report Type: 
  Country: None (occurrence: None)
  Receive Date: 20111024
  Receipt Date: 20111013
  Transmission Date: 20120403
  Serious: Yes (Hospitalization)
  Sender: FDA-Public Use
  Company Number: 2011SP048438

PATIENT
  Sex: Male

DRUGS (1)
  1. NOXAFIL [Suspect]
     Indication: VISCERAL LEISHMANIASIS
     Dosage: 400 MG;BID

REACTIONS (2)
  - HAEMATURIA [None]
  - CYSTITIS RADIATION [None]
